FAERS Safety Report 9619280 (Version 2)
Quarter: 2013Q4

REPORT INFORMATION
  Report Type: Spontaneous
  Country: JP (occurrence: JP)
  Receive Date: 20131014
  Receipt Date: 20131014
  Transmission Date: 20140711
  Serious: Yes (Other)
  Sender: FDA-Public Use
  Company Number: JP-PFIZER INC-2013250925

PATIENT
  Age: 91 Year
  Sex: Female

DRUGS (12)
  1. AMLODIN [Suspect]
     Indication: HYPERTENSION
     Dosage: 5 MG, DAILY
     Route: 048
     Dates: start: 20130721, end: 20130822
  2. ALDACTONE-A [Concomitant]
     Dosage: UNK
  3. LASIX [Concomitant]
     Dosage: UNK
  4. MAGMITT [Concomitant]
     Dosage: UNK
  5. BASEN OD [Concomitant]
     Dosage: UNK
  6. EUGLUCON [Concomitant]
     Dosage: UNK
  7. LENDORMIN [Concomitant]
     Dosage: UNK
  8. PURSENNID [Concomitant]
     Dosage: UNK
  9. PREDONINE [Concomitant]
     Dosage: UNK
  10. MUCOSTA [Concomitant]
     Dosage: UNK
  11. ONEALFA [Concomitant]
     Dosage: UNK
  12. NICOTINAMIDE [Concomitant]
     Dosage: UNK

REACTIONS (1)
  - Toxic skin eruption [Recovered/Resolved]
